FAERS Safety Report 5596154-4 (Version None)
Quarter: 2008Q1

REPORT INFORMATION
  Report Type: 
  Country: None (occurrence: None)
  Receive Date: 20080118
  Receipt Date: 20080111
  Transmission Date: 20080703
  Serious: Yes (Other)
  Sender: FDA-Public Use
  Company Number: US-GILEAD-2008-0014935

PATIENT
  Sex: Female
  Weight: 72.64 kg

DRUGS (5)
  1. LETAIRIS [Suspect]
     Indication: PULMONARY HYPERTENSION
     Route: 048
     Dates: start: 20071106
  2. REMODULIN [Concomitant]
     Indication: PULMONARY HYPERTENSION
     Route: 058
  3. REVATIO [Concomitant]
     Indication: PULMONARY HYPERTENSION
     Route: 048
  4. DIOVAN [Concomitant]
     Indication: ESSENTIAL HYPERTENSION
     Route: 048
  5. LASIX [Concomitant]
     Indication: PULMONARY HYPERTENSION
     Route: 048

REACTIONS (2)
  - FACE OEDEMA [None]
  - OEDEMA PERIPHERAL [None]
